FAERS Safety Report 4366693-2 (Version None)
Quarter: 2004Q2

REPORT INFORMATION
  Report Type: 
  Country: None (occurrence: None)
  Receive Date: 20040527
  Receipt Date: 20040517
  Transmission Date: 20050107
  Serious: Yes (Hospitalization, Other)
  Sender: FDA-Public Use
  Company Number: FR-BRISTOL-MYERS SQUIBB COMPANY-12589735

PATIENT
  Age: 36 Year
  Sex: Male

DRUGS (12)
  1. AMIKLIN INJ [Suspect]
     Dates: start: 20040206, end: 20040218
  2. VANCOMYCIN [Suspect]
     Dates: start: 20040206, end: 20040218
  3. MORPHINE [Concomitant]
     Dates: start: 20040217
  4. IMOVANE [Concomitant]
     Dosage: 7.5 MG TABLET
     Dates: start: 20040217
  5. TRANXENE [Concomitant]
     Dates: start: 20040217
  6. OFLOCET [Concomitant]
  7. FLAGYL [Concomitant]
  8. CLINDAMYCIN HCL [Concomitant]
  9. CLAFORAN [Concomitant]
     Dates: start: 20040218
  10. GENTAMICIN [Concomitant]
     Dates: start: 20040218
  11. ZYVOXID [Concomitant]
     Dates: end: 20040225
  12. CLAMOXYL [Concomitant]
     Dates: start: 20040414

REACTIONS (19)
  - ALOPECIA [None]
  - ASTHENIA [None]
  - DERMATITIS ALLERGIC [None]
  - DERMATITIS EXFOLIATIVE [None]
  - EOSINOPHILIA [None]
  - GENERAL PHYSICAL HEALTH DETERIORATION [None]
  - HEPATITIS [None]
  - INFLAMMATION [None]
  - ONYCHOLYSIS [None]
  - PROTHROMBIN TIME SHORTENED [None]
  - PRURITUS [None]
  - PYREXIA [None]
  - RASH ERYTHEMATOUS [None]
  - SCAR [None]
  - SENSE OF OPPRESSION [None]
  - SOMNOLENCE [None]
  - TACHYCARDIA [None]
  - TOXIC SKIN ERUPTION [None]
  - WEIGHT INCREASED [None]
